FAERS Safety Report 7794753-2 (Version None)
Quarter: 2011Q4

REPORT INFORMATION
  Report Type: 
  Country: None (occurrence: None)
  Receive Date: 20111004
  Receipt Date: 20110928
  Transmission Date: 20120403
  Serious: No
  Sender: FDA-Public Use
  Company Number: US-PFIZER INC-2011231280

PATIENT
  Sex: Female

DRUGS (1)
  1. PRISTIQ [Suspect]
     Dosage: UNK

REACTIONS (4)
  - LIP SWELLING [None]
  - VISION BLURRED [None]
  - VISUAL IMPAIRMENT [None]
  - CHAPPED LIPS [None]
